FAERS Safety Report 7092428-9 (Version None)
Quarter: 2010Q4

REPORT INFORMATION
  Report Type: 
  Country: None (occurrence: None)
  Receive Date: 20101110
  Receipt Date: 20101104
  Transmission Date: 20110411
  Serious: Yes (Life-Threatening, Hospitalization, Other)
  Sender: FDA-Public Use
  Company Number: GB-BAYER-201041477GPV

PATIENT
  Age: 60 Year
  Sex: Male
  Weight: 118 kg

DRUGS (1)
  1. PRIMOVIST [Suspect]
     Indication: LIVER SCAN
     Dosage: STANDARD VIAL
     Dates: start: 20100927, end: 20100927

REACTIONS (5)
  - ANAPHYLACTIC REACTION [None]
  - ELECTROMECHANICAL DISSOCIATION [None]
  - PRURITUS [None]
  - TACHYPNOEA [None]
  - URTICARIA [None]
